FAERS Safety Report 17223690 (Version 1)
Quarter: 2020Q1

REPORT INFORMATION
  Report Type: Spontaneous
  Country: CA (occurrence: CA)
  Receive Date: 20200102
  Receipt Date: 20200102
  Transmission Date: 20200409
  Serious: Yes (Life-Threatening, Hospitalization, Other)
  Sender: FDA-Public Use
  Company Number: CA-AUROBINDO-AUR-APL-2019-108321

PATIENT
  Age: 12 Year
  Sex: Female
  Weight: 43 kg

DRUGS (3)
  1. HALDOL [Suspect]
     Active Substance: HALOPERIDOL
     Indication: AGITATION
     Dosage: 1 MILLIGRAM, TWO TIMES A DAY
     Route: 042
  2. ZYPREXA [Suspect]
     Active Substance: OLANZAPINE
     Indication: AGITATION
     Dosage: 5 MILLIGRAM, FOUR TIMES/DAY
     Route: 048
  3. OLANZAPINE. [Suspect]
     Active Substance: OLANZAPINE
     Indication: AGITATION
     Dosage: 5 MILLIGRAM, FOUR TIMES/DAY
     Route: 030

REACTIONS (10)
  - Cardiac arrest [Unknown]
  - Cardiac failure [Unknown]
  - Hyperphosphataemia [Unknown]
  - Hyperthermia [Unknown]
  - Hypocalcaemia [Unknown]
  - Rhabdomyolysis [Unknown]
  - Off label use [Unknown]
  - Haemodynamic test abnormal [Unknown]
  - Acute kidney injury [Unknown]
  - Neuroleptic malignant syndrome [Unknown]
